FAERS Safety Report 14201923 (Version 1)
Quarter: 2017Q4

REPORT INFORMATION
  Report Type: Spontaneous
  Country: US (occurrence: US)
  Receive Date: 20171117
  Receipt Date: 20171117
  Transmission Date: 20180321
  Serious: No
  Sender: FDA-Public Use
  Company Number: US-PFIZER INC-2017491869

PATIENT
  Age: 37 Year
  Sex: Male
  Weight: 113 kg

DRUGS (7)
  1. EMBEDA [Suspect]
     Active Substance: MORPHINE SULFATE\NALTREXONE HYDROCHLORIDE
     Indication: PAIN
     Dosage: 20 MG, 2X/DAY
     Route: 048
     Dates: start: 20171109
  2. METOPROLOL. [Concomitant]
     Active Substance: METOPROLOL
     Indication: HYPERTENSION
     Dosage: 25 MG, 1X/DAY
     Dates: start: 2016
  3. TIZANIDINE. [Suspect]
     Active Substance: TIZANIDINE
     Indication: SLEEP DISORDER
     Dosage: 8 MG, 1X/DAY
     Route: 048
     Dates: start: 201702
  4. PERCOCET /00446701/ [Concomitant]
     Active Substance: ACETAMINOPHEN\OXYCODONE HYDROCHLORIDE\OXYCODONE TEREPHTHALATE
     Indication: BACK PAIN
     Dosage: 10 MG, 3X/DAY
     Dates: start: 20171109
  5. LISINOPRIL. [Concomitant]
     Active Substance: LISINOPRIL
     Indication: HYPERTENSION
     Dosage: 40 MG, 1X/DAY
     Dates: start: 2014
  6. TRINTELLIX [Concomitant]
     Active Substance: VORTIOXETINE HYDROBROMIDE
     Indication: ANXIETY
     Dosage: 20 MG, 1X/DAY
     Dates: start: 201708
  7. PERCOCET /00446701/ [Concomitant]
     Active Substance: ACETAMINOPHEN\OXYCODONE HYDROCHLORIDE\OXYCODONE TEREPHTHALATE
     Indication: ARTHRALGIA
     Dosage: 37.5 MG, DAILY; 7.5 MG, FIVE TIMES A DAY
     Dates: start: 201702, end: 20171108

REACTIONS (3)
  - Hypoaesthesia [Not Recovered/Not Resolved]
  - Dysphagia [Unknown]
  - Somnolence [Unknown]

NARRATIVE: CASE EVENT DATE: 20171109
